FAERS Safety Report 13859430 (Version 1)
Quarter: 2017Q3

REPORT INFORMATION
  Report Type: Spontaneous
  Country: JP (occurrence: JP)
  Receive Date: 20170811
  Receipt Date: 20170811
  Transmission Date: 20171127
  Serious: No
  Sender: FDA-Public Use
  Company Number: JP-LUPIN PHARMACEUTICALS INC.-2017-02929

PATIENT
  Age: 77 Year
  Sex: Female

DRUGS (9)
  1. IMIPRAMINE [Suspect]
     Active Substance: IMIPRAMINE
     Dosage: UNK
     Route: 065
  2. REMIFENTANIL [Concomitant]
     Active Substance: REMIFENTANIL
     Indication: GENERAL ANAESTHESIA
     Dosage: UNK
     Route: 065
  3. ROCURONIUM [Concomitant]
     Active Substance: ROCURONIUM BROMIDE
     Indication: GENERAL ANAESTHESIA
     Dosage: UNK
     Route: 065
  4. MILNACIPRAN [Suspect]
     Active Substance: MILNACIPRAN
     Indication: ANTIDEPRESSANT THERAPY
     Dosage: UNK
     Route: 065
  5. IMIPRAMINE [Suspect]
     Active Substance: IMIPRAMINE
     Indication: ANTIDEPRESSANT THERAPY
     Dosage: UNK
     Route: 065
  6. IMIPRAMINE [Suspect]
     Active Substance: IMIPRAMINE
     Dosage: DOSE HALVED
     Route: 065
  7. PAROXETINE. [Suspect]
     Active Substance: PAROXETINE
     Indication: ANTIDEPRESSANT THERAPY
     Dosage: UNK
     Route: 065
  8. PAROXETINE. [Suspect]
     Active Substance: PAROXETINE
     Dosage: UNK
     Route: 065
  9. PROPOFOL. [Concomitant]
     Active Substance: PROPOFOL
     Indication: GENERAL ANAESTHESIA
     Dosage: UNK
     Route: 065

REACTIONS (1)
  - Hypotension [Recovered/Resolved]
